FAERS Safety Report 21007749 (Version 5)
Quarter: 2024Q1

REPORT INFORMATION
  Report Type: Report from Study
  Country: JP (occurrence: JP)
  Receive Date: 20220627
  Receipt Date: 20240329
  Transmission Date: 20240410
  Serious: Yes (Life-Threatening, Other)
  Sender: FDA-Public Use
  Company Number: JP-NOVARTISPH-NVSJ2022JP092666

PATIENT
  Age: 20 Year
  Sex: Female
  Weight: 44.3 kg

DRUGS (4)
  1. KYMRIAH [Suspect]
     Active Substance: TISAGENLECLEUCEL
     Indication: Acute lymphocytic leukaemia
     Dosage: TOTAL CELLS: 3.5X10^6 (FULL DOSE)
     Route: 041
     Dates: start: 20220119
  2. METHYLPREDNISOLONE [Concomitant]
     Active Substance: METHYLPREDNISOLONE
     Indication: Acute lymphocytic leukaemia
     Dosage: UNK
     Route: 065
  3. FLUDARABINE [Concomitant]
     Active Substance: FLUDARABINE PHOSPHATE
     Indication: Lymphodepletion
     Dosage: 120 MG/M2
     Route: 065
     Dates: start: 20220113
  4. CYCLOPHOSPHAMIDE [Concomitant]
     Active Substance: CYCLOPHOSPHAMIDE
     Indication: Lymphodepletion
     Dosage: 1000 MG/M2
     Route: 065
     Dates: start: 20220113

REACTIONS (10)
  - Cytokine release syndrome [Recovered/Resolved]
  - Pyrexia [Unknown]
  - Blood fibrinogen decreased [Unknown]
  - Blood pressure decreased [Recovering/Resolving]
  - Hypoxia [Recovering/Resolving]
  - Respiratory disorder [Recovering/Resolving]
  - Cardiovascular insufficiency [Recovering/Resolving]
  - Facial paralysis [Unknown]
  - Acute kidney injury [Recovering/Resolving]
  - Hypoaesthesia [Unknown]

NARRATIVE: CASE EVENT DATE: 20220121
